FAERS Safety Report 10947337 (Version 1)
Quarter: 2015Q1

REPORT INFORMATION
  Report Type: Spontaneous
  Country: US (occurrence: None)
  Receive Date: 20150218
  Receipt Date: 20150218
  Transmission Date: 20150721
  Serious: No
  Sender: FDA-Public Use
  Company Number: 2014FE03018

PATIENT
  Age: 71 Year
  Sex: Female
  Weight: 52.2 kg

DRUGS (1)
  1. PREPOPIK [Suspect]
     Active Substance: ANHYDROUS CITRIC ACID\MAGNESIUM OXIDE\SODIUM PICOSULFATE
     Indication: BOWEL PREPARATION
     Dosage: FORMULATION, POWDER FOR ORAL SOLUTION
     Route: 048
     Dates: start: 20141023, end: 20141023

REACTIONS (3)
  - Nausea [None]
  - Hyperhidrosis [None]
  - Vomiting [None]

NARRATIVE: CASE EVENT DATE: 20141023
